FAERS Safety Report 6301711-3 (Version None)
Quarter: 2009Q3

REPORT INFORMATION
  Report Type: 
  Country: None (occurrence: None)
  Receive Date: 20090807
  Receipt Date: 20090803
  Transmission Date: 20100115
  Serious: Yes (Life-Threatening, Hospitalization)
  Sender: FDA-Public Use
  Company Number: FR-ASTRAZENECA-2009SE06826

PATIENT
  Age: 6542 Day
  Sex: Female

DRUGS (13)
  1. PROPOFOL [Suspect]
     Indication: ANAESTHESIA
     Route: 042
  2. SOLU-MEDROL [Suspect]
     Indication: RENAL TRANSPLANT
     Route: 042
     Dates: start: 20080222, end: 20080222
  3. SIMULECT [Suspect]
     Indication: RENAL TRANSPLANT
     Route: 042
     Dates: start: 20080222, end: 20080222
  4. NEORAL [Suspect]
     Indication: RENAL TRANSPLANT
     Route: 048
     Dates: start: 20080222, end: 20080222
  5. CELLCEPT [Suspect]
     Indication: RENAL TRANSPLANT
     Route: 048
     Dates: start: 20080222, end: 20080222
  6. OFLOXACIN [Suspect]
     Indication: RENAL TRANSPLANT
     Route: 048
     Dates: start: 20080222, end: 20080222
  7. SUFENTANIL [Suspect]
     Indication: ANAESTHESIA
  8. TRACRIUM [Suspect]
     Indication: ANAESTHESIA
  9. OMEPRAZOLE [Concomitant]
     Route: 048
  10. CALCIDIA [Concomitant]
  11. RENAGEL [Concomitant]
  12. VENOFER [Concomitant]
  13. RECORMON [Concomitant]

REACTIONS (1)
  - ANAPHYLACTIC SHOCK [None]
